FAERS Safety Report 8510069-0 (Version None)
Quarter: 2012Q3

REPORT INFORMATION
  Report Type: 
  Country: None (occurrence: None)
  Receive Date: 20120713
  Receipt Date: 20120709
  Transmission Date: 20120928
  Serious: Yes (Other)
  Sender: FDA-Public Use
  Company Number: US-PFIZER INC-2012164398

PATIENT
  Sex: Female
  Weight: 81.179 kg

DRUGS (5)
  1. ZOLOFT [Suspect]
     Indication: ANXIETY
  2. EFFEXOR XR [Suspect]
     Indication: DEPRESSION
     Dosage: 150MG IN MORNING AND 75MG AT NIGHT
     Route: 048
     Dates: end: 20120707
  3. TRAZODONE [Concomitant]
     Dosage: UNK
  4. EFFEXOR XR [Suspect]
     Indication: ANXIETY
  5. ZOLOFT [Suspect]
     Indication: DEPRESSION
     Dosage: 150 MG, 1X/DAY
     Route: 048

REACTIONS (4)
  - FEAR [None]
  - NERVOUSNESS [None]
  - ANXIETY [None]
  - DEPRESSION [None]
